FAERS Safety Report 20984925 (Version 1)
Quarter: 2022Q2

REPORT INFORMATION
  Report Type: Spontaneous
  Country: US (occurrence: US)
  Receive Date: 20220621
  Receipt Date: 20220621
  Transmission Date: 20220721
  Serious: No
  Sender: FDA-Public Use
  Company Number: US-SUN PHARMACEUTICAL INDUSTRIES LTD-2022R1-332644

PATIENT
  Age: 17 Year
  Sex: Male

DRUGS (1)
  1. WINLEVI [Suspect]
     Active Substance: CLASCOTERONE
     Indication: Acne
     Dosage: UNK(SATURDAY TWICE, SUNDAY TWICE, MONDAY TWICE AND TUESDAY A.M
     Route: 065

REACTIONS (2)
  - Condition aggravated [Unknown]
  - Therapy interrupted [Unknown]
